FAERS Safety Report 7026988-0 (Version None)
Quarter: 2010Q4

REPORT INFORMATION
  Report Type: 
  Country: None (occurrence: None)
  Receive Date: 20101004
  Receipt Date: 20100924
  Transmission Date: 20110411
  Serious: Yes (Death)
  Sender: FDA-Public Use
  Company Number: GXKR2010GB10433

PATIENT
  Age: 70 Year
  Sex: Female
  Weight: 26.4 kg

DRUGS (8)
  1. FLUCONAZOLE [Suspect]
     Indication: SYSTEMIC CANDIDA
     Dosage: UNK
     Route: 048
     Dates: start: 20100111, end: 20100131
  2. WARFARIN SODIUM [Interacting]
     Dosage: UNK
     Route: 048
     Dates: end: 20100131
  3. CALPOL [Concomitant]
     Route: 048
  4. CODEINE PHOSPHATE [Concomitant]
     Route: 048
  5. COD-LIVER OIL [Concomitant]
     Route: 048
  6. ASCORBIC ACID [Concomitant]
     Route: 048
  7. VITAMIN D [Concomitant]
     Route: 048
  8. VITAMIN E [Concomitant]
     Route: 048

REACTIONS (4)
  - CEREBRAL HAEMORRHAGE [None]
  - DRUG INTERACTION [None]
  - HAEMORRHAGE [None]
  - INTERNATIONAL NORMALISED RATIO INCREASED [None]
